FAERS Safety Report 4604303-7 (Version None)
Quarter: 2005Q1

REPORT INFORMATION
  Report Type: 
  Country: None (occurrence: None)
  Receive Date: 20050310
  Receipt Date: 20050301
  Transmission Date: 20050727
  Serious: Yes (Hospitalization, Other)
  Sender: FDA-Public Use
  Company Number: US-ABBOTT-05P-163-0292443-00

PATIENT
  Sex: Female
  Weight: 68.1 kg

DRUGS (7)
  1. HUMIRA [Suspect]
     Indication: RHEUMATOID ARTHRITIS
     Route: 058
     Dates: start: 20030101, end: 20050101
  2. ANTIBIOTICS [Concomitant]
     Indication: PROPHYLAXIS
     Route: 042
     Dates: start: 20050120, end: 20050123
  3. MORPHINE [Concomitant]
     Indication: POST PROCEDURAL PAIN
     Route: 042
     Dates: start: 20050120, end: 20050122
  4. LANSOPRAZOLE [Concomitant]
     Indication: GASTROOESOPHAGEAL REFLUX DISEASE
     Route: 048
  5. CYPROHEPTADINE HYDROCHLORIDE [Concomitant]
     Indication: DRUG USE FOR UNKNOWN INDICATION
     Route: 048
  6. HYDROCODONE BITARTRATE [Concomitant]
     Indication: PAIN
     Route: 048
  7. PREDNISONE [Concomitant]
     Indication: DRUG USE FOR UNKNOWN INDICATION
     Route: 048

REACTIONS (3)
  - FALL [None]
  - OSTEOARTHRITIS [None]
  - PATELLA FRACTURE [None]
